FAERS Safety Report 10272561 (Version 1)
Quarter: 2014Q2

REPORT INFORMATION
  Report Type: Spontaneous
  Country: GB (occurrence: None)
  Receive Date: 20140630
  Receipt Date: 20140630
  Transmission Date: 20141212
  Serious: No
  Sender: FDA-Public Use
  Company Number: GB2014K2340SPO

PATIENT
  Sex: Female

DRUGS (1)
  1. LANSOPRAZOLE WORLD (LANSOPRAZOLE) UNKNOWN [Suspect]
     Indication: PRODUCT USED FOR UNKNOWN INDICATION
     Dosage: 1X/DAY
     Route: 048
     Dates: start: 20140527, end: 20140531

REACTIONS (2)
  - Product substitution issue [None]
  - Bedridden [None]
